FAERS Safety Report 9169191 (Version 1)
Quarter: 2013Q1

REPORT INFORMATION
  Report Type: Spontaneous
  Country: FR (occurrence: FR)
  Receive Date: 20130318
  Receipt Date: 20130318
  Transmission Date: 20140127
  Serious: Yes (Hospitalization)
  Sender: FDA-Public Use
  Company Number: FR-ROCHE-1202610

PATIENT
  Age: 91 Year
  Sex: Male

DRUGS (9)
  1. LUCENTIS [Suspect]
     Indication: AGE-RELATED MACULAR DEGENERATION
     Route: 050
     Dates: start: 200905
  2. LUCENTIS [Suspect]
     Route: 050
     Dates: start: 200906, end: 200906
  3. FLODIL [Concomitant]
  4. LASILIX [Concomitant]
     Route: 065
  5. CORDARONE [Concomitant]
     Route: 065
  6. PARIET [Concomitant]
     Route: 065
  7. LEXOMIL [Concomitant]
  8. PAROXETINE [Concomitant]
     Route: 065
  9. KARDEGIC [Concomitant]

REACTIONS (1)
  - Acute pulmonary oedema [Recovered/Resolved]
